FAERS Safety Report 17967533 (Version 1)
Quarter: 2020Q2

REPORT INFORMATION
  Report Type: Spontaneous
  Country: US (occurrence: US)
  Receive Date: 20200630
  Receipt Date: 20200630
  Transmission Date: 20200714
  Serious: No
  Sender: FDA-Public Use
  Company Number: None

PATIENT
  Age: 22 Year
  Sex: Male
  Weight: 89.1 kg

DRUGS (5)
  1. MONTELUKAST [Concomitant]
     Active Substance: MONTELUKAST SODIUM
  2. CIPROFLOXACIN HYDROCHLORIDE 500 MG TAB [Suspect]
     Active Substance: CIPROFLOXACIN HYDROCHLORIDE
     Indication: CROHN^S DISEASE
     Dosage: ?          QUANTITY:1 TABLET(S);?
     Route: 048
     Dates: start: 20200629, end: 20200630
  3. METRONIDAZOLE TOPICAL CREAM [Concomitant]
     Active Substance: METRONIDAZOLE
  4. EMERGEN-C-IMMUNE PLUS [Concomitant]
  5. ATOMOXETINE 80MG [Concomitant]
     Active Substance: ATOMOXETINE

REACTIONS (2)
  - Paraesthesia [None]
  - Muscle twitching [None]

NARRATIVE: CASE EVENT DATE: 20200630
